FAERS Safety Report 23111289 (Version 1)
Quarter: 2023Q4

REPORT INFORMATION
  Report Type: Spontaneous
  Country: US (occurrence: US)
  Receive Date: 20231026
  Receipt Date: 20231026
  Transmission Date: 20240109
  Serious: No
  Sender: FDA-Public Use
  Company Number: US-JAZZ PHARMACEUTICALS-2023-US-011338

PATIENT
  Age: 32 Year
  Sex: Male

DRUGS (4)
  1. DEFITELIO [Suspect]
     Active Substance: DEFIBROTIDE SODIUM
     Indication: Product used for unknown indication
  2. FLUOROURACIL [Concomitant]
     Active Substance: FLUOROURACIL
  3. OXALIPLATIN [Concomitant]
     Active Substance: OXALIPLATIN
  4. NIVOLUMAB [Concomitant]
     Active Substance: NIVOLUMAB

REACTIONS (1)
  - Off label use [Unknown]
